FAERS Safety Report 25796825 (Version 1)
Quarter: 2025Q3

REPORT INFORMATION
  Report Type: Spontaneous
  Country: US (occurrence: US)
  Receive Date: 20250912
  Receipt Date: 20250912
  Transmission Date: 20251021
  Serious: No
  Sender: SANOFI AVENTIS
  Company Number: US-SANOFI-02646207

PATIENT
  Age: 75 Year
  Sex: Male

DRUGS (2)
  1. ALTUVIIIO [Suspect]
     Active Substance: EFANESOCTOCOG ALFA
     Indication: Factor VIII deficiency
     Dosage: 4285 IU, QW
     Route: 042
     Dates: start: 20250113, end: 2025
  2. ALTUVIIIO [Suspect]
     Active Substance: EFANESOCTOCOG ALFA
     Dosage: 4285 IU, QW
     Route: 042
     Dates: start: 20250621

REACTIONS (4)
  - Haemorrhage [Unknown]
  - Therapeutic response shortened [Unknown]
  - Limb discomfort [Unknown]
  - Factor VIII activity decreased [Unknown]

NARRATIVE: CASE EVENT DATE: 20250101
